FAERS Safety Report 4339403-2 (Version None)
Quarter: 2004Q2

REPORT INFORMATION
  Report Type: 
  Country: None (occurrence: None)
  Receive Date: 20040415
  Receipt Date: 20040326
  Transmission Date: 20050107
  Serious: Yes (Hospitalization)
  Sender: FDA-Public Use
  Company Number: PHHO2004IT04428

PATIENT
  Age: 56 Year
  Sex: Male
  Weight: 83 kg

DRUGS (5)
  1. SDZ RAD [Concomitant]
     Indication: HEART TRANSPLANT
     Dosage: 1.5 MG, BID
     Route: 048
     Dates: start: 20031212
  2. SDZ RAD [Concomitant]
     Dosage: 2.5 MG/DAY
     Route: 048
     Dates: start: 20040102, end: 20040113
  3. SDZ RAD [Concomitant]
     Dosage: 1 MG, BID
     Route: 048
     Dates: start: 20040114
  4. NEORAL [Suspect]
     Indication: HEART TRANSPLANT
     Dosage: 100 MG DAILY DOSE
     Dates: start: 20031201, end: 20040108
  5. NEORAL [Suspect]
     Dosage: 75MG DAILY
     Dates: start: 20040108

REACTIONS (7)
  - ABDOMINAL PAIN [None]
  - CHOLELITHIASIS [None]
  - DIALYSIS [None]
  - ENTEROBACTER INFECTION [None]
  - PNEUMONIA KLEBSIELLA [None]
  - PYREXIA [None]
  - RENAL IMPAIRMENT [None]
